FAERS Safety Report 13197234 (Version 3)
Quarter: 2017Q3

REPORT INFORMATION
  Report Type: Spontaneous
  Country: US (occurrence: US)
  Receive Date: 20170208
  Receipt Date: 20170801
  Transmission Date: 20171127
  Serious: No
  Sender: FDA-Public Use
  Company Number: US-TAKEDA-2017TUS002092

PATIENT
  Age: 28 Year
  Sex: Female

DRUGS (1)
  1. TRINTELLIX [Suspect]
     Active Substance: VORTIOXETINE HYDROBROMIDE
     Indication: MAJOR DEPRESSION
     Dosage: UNK
     Route: 065

REACTIONS (6)
  - Pain [Unknown]
  - Drug ineffective [Unknown]
  - Nausea [Unknown]
  - Cognitive disorder [Unknown]
  - Disturbance in attention [Unknown]
  - Rash [Unknown]
